FAERS Safety Report 8524589 (Version 2)
Quarter: 2012Q4

REPORT INFORMATION
  Report Type: 
  Country: AU (occurrence: AU)
  Receive Date: 20120420
  Receipt Date: 20121018
  Transmission Date: 20130627
  Serious: Yes (Death, Other)
  Sender: FDA-Public Use
  Company Number: PHHY2010AU093817

PATIENT
  Age: 90 None
  Sex: Female

DRUGS (5)
  1. ACLASTA [Suspect]
     Dosage: 5 mg
     Route: 042
     Dates: start: 20090701
  2. IRBESARTAN [Concomitant]
     Dosage: 150 mg, UNK
  3. VITAMIN D [Concomitant]
  4. PANADOL OSTEO [Concomitant]
  5. NORSPAN PATCHES [Concomitant]

REACTIONS (2)
  - Sudden death [Fatal]
  - Cerebrovascular accident [Unknown]
